FAERS Safety Report 7185358-5 (Version None)
Quarter: 2010Q4

REPORT INFORMATION
  Report Type: 
  Country: None (occurrence: None)
  Receive Date: 20101222
  Receipt Date: 20101214
  Transmission Date: 20110411
  Serious: Yes (Hospitalization, Other)
  Sender: FDA-Public Use
  Company Number: US-PFIZER INC-US-WYE-H16816910

PATIENT
  Sex: Female
  Weight: 81.7 kg

DRUGS (4)
  1. RELISTOR [Suspect]
     Indication: CONSTIPATION
     Dosage: 12 MG, 1X/TOT
     Route: 065
     Dates: start: 20091016, end: 20091016
  2. OXYCONTIN [Concomitant]
     Dosage: UNK
     Route: 048
     Dates: start: 20080101
  3. PHENERGAN CREAM /OLD/ [Concomitant]
     Dosage: UNK
     Route: 048
     Dates: start: 19960101
  4. VICODIN [Concomitant]
     Dosage: UNK
     Route: 048
     Dates: start: 20060101

REACTIONS (13)
  - ABDOMINAL PAIN [None]
  - ABDOMINAL RIGIDITY [None]
  - BURNING SENSATION [None]
  - DEHYDRATION [None]
  - DRUG INEFFECTIVE [None]
  - FEELING OF BODY TEMPERATURE CHANGE [None]
  - HYPERHIDROSIS [None]
  - INTUSSUSCEPTION [None]
  - NAUSEA [None]
  - NEEDLE ISSUE [None]
  - PAIN [None]
  - PYREXIA [None]
  - VOMITING [None]
